FAERS Safety Report 23652137 (Version 1)
Quarter: 2024Q1

REPORT INFORMATION
  Report Type: Spontaneous
  Country: KR (occurrence: KR)
  Receive Date: 20240320
  Receipt Date: 20240320
  Transmission Date: 20240410
  Serious: Yes (Other)
  Sender: FDA-Public Use
  Company Number: KR-ALKEM LABORATORIES LIMITED-KP-ALKEM-2024-03678

PATIENT
  Age: 30 Year
  Sex: Male

DRUGS (4)
  1. EVEROLIMUS [Suspect]
     Active Substance: EVEROLIMUS
     Indication: Lymphangiectasia intestinal
     Dosage: 2.5 MILLIGRAM, QD
     Route: 048
  2. SIROLIMUS [Suspect]
     Active Substance: SIROLIMUS
     Indication: Lymphangiectasia intestinal
     Dosage: UNK, QD (1-2 MG), (3)-(4)
     Route: 048
  3. OCTREOTIDE [Concomitant]
     Active Substance: OCTREOTIDE\OCTREOTIDE ACETATE
     Indication: Lymphangiectasia intestinal
     Dosage: UNK (100-200 MCG QD-BID)
     Route: 058
  4. TRANEXAMIC ACID [Concomitant]
     Active Substance: TRANEXAMIC ACID
     Indication: Lymphangiectasia intestinal
     Dosage: 500 MILLIGRAM, TID (4)
     Route: 048

REACTIONS (3)
  - Bronchopulmonary aspergillosis [Unknown]
  - Tuberculosis [Unknown]
  - Herpes zoster [Unknown]
